FAERS Safety Report 24207578 (Version 2)
Quarter: 2024Q3

REPORT INFORMATION
  Report Type: Spontaneous
  Country: BR (occurrence: BR)
  Receive Date: 20240814
  Receipt Date: 20240830
  Transmission Date: 20241017
  Serious: Yes (Hospitalization, Other)
  Sender: NOVO NORDISK
  Company Number: BR-NOVOPROD-1266039

PATIENT
  Age: 50 Year
  Sex: Male

DRUGS (1)
  1. OZEMPIC [Suspect]
     Active Substance: SEMAGLUTIDE
     Indication: Obesity
     Dosage: 0.5MG

REACTIONS (5)
  - Obstructive pancreatitis [Unknown]
  - Pancreatic calcification [Unknown]
  - Pancreatitis necrotising [Unknown]
  - Bile duct stone [Unknown]
  - Off label use [Recovered/Resolved]
